FAERS Safety Report 20776697 (Version 6)
Quarter: 2022Q4

REPORT INFORMATION
  Report Type: Spontaneous
  Country: US (occurrence: US)
  Receive Date: 20220502
  Receipt Date: 20221202
  Transmission Date: 20230113
  Serious: Yes (Other)
  Sender: FDA-Public Use
  Company Number: US-SA-SAC20220429000714

PATIENT
  Age: 58 Year
  Sex: Female
  Weight: 49.887 kg

DRUGS (12)
  1. DUPIXENT [Suspect]
     Active Substance: DUPILUMAB
     Indication: Dermatitis allergic
     Dosage: 300 MG
     Route: 058
     Dates: start: 20210426, end: 20210506
  2. DUPIXENT [Suspect]
     Active Substance: DUPILUMAB
     Indication: Psoriasis
     Dosage: 300 MG, QOW
     Route: 058
     Dates: start: 20211129
  3. DUPIXENT [Suspect]
     Active Substance: DUPILUMAB
     Indication: Dermatitis atopic
     Dosage: 300 MG, QOW
     Route: 058
     Dates: start: 20220209
  4. TRIAMCINOLONE [Suspect]
     Active Substance: TRIAMCINOLONE
     Indication: Dermatitis atopic
     Dosage: UNK UNK, BID
     Route: 061
     Dates: start: 20220311, end: 20220506
  5. TEGRETOL [Concomitant]
     Active Substance: CARBAMAZEPINE
     Indication: Epilepsy
     Dosage: UNK
     Route: 048
  6. IRON [Concomitant]
     Active Substance: IRON
     Dosage: UNK, QD
     Route: 061
  7. BETAMETHASONE [Concomitant]
     Active Substance: BETAMETHASONE
     Indication: Psoriasis
     Dosage: UNK UNK, PRN
     Route: 061
  8. VITAMINS NOS [Concomitant]
     Active Substance: VITAMINS
     Dosage: UNK, QD
     Route: 061
  9. OPZELURA [Concomitant]
     Active Substance: RUXOLITINIB PHOSPHATE
     Indication: Dermatitis atopic
     Dosage: UNK
     Route: 061
  10. TALTZ [Concomitant]
     Active Substance: IXEKIZUMAB
     Indication: Psoriasis
     Dosage: UNK UNK, Q4W
     Route: 042
     Dates: start: 20211129
  11. PREDNISONE [Concomitant]
     Active Substance: PREDNISONE
     Indication: Rash
     Dosage: DOSAGE/ UNIT: 2 NK TAPER
     Route: 048
  12. VITAMIN B+C [Concomitant]
     Dosage: UNK, QD
     Route: 061

REACTIONS (6)
  - COVID-19 pneumonia [Unknown]
  - Dyspnoea [Unknown]
  - Eczema [Not Recovered/Not Resolved]
  - Drug hypersensitivity [Unknown]
  - Rash [Recovered/Resolved]
  - Product use in unapproved indication [Unknown]

NARRATIVE: CASE EVENT DATE: 20220209
